FAERS Safety Report 8608731-4 (Version None)
Quarter: 2012Q3

REPORT INFORMATION
  Report Type: 
  Country: None (occurrence: None)
  Receive Date: 20120821
  Receipt Date: 20120815
  Transmission Date: 20120928
  Serious: Yes (Death, Hospitalization)
  Sender: FDA-Public Use
  Company Number: JP-CELGENEUS-087-50794-12082098

PATIENT
  Sex: Male
  Weight: 57 kg

DRUGS (20)
  1. OLMESARTAN MEDOXOMIL [Concomitant]
     Route: 065
     Dates: end: 20111130
  2. LASIX [Concomitant]
     Route: 065
     Dates: end: 20111130
  3. FIRSTCIN [Concomitant]
     Route: 065
     Dates: start: 20110707, end: 20110720
  4. BELMATON [Concomitant]
     Route: 065
     Dates: start: 20110913, end: 20110927
  5. VIDAZA [Suspect]
     Indication: MYELODYSPLASTIC SYNDROME
     Dosage: 75 MILLIGRAM/SQ. METER
     Route: 058
     Dates: start: 20110516, end: 20110522
  6. WHOLE BLOOD [Concomitant]
     Indication: PANCYTOPENIA
     Route: 041
     Dates: start: 20110720, end: 20110720
  7. VIDAZA [Suspect]
     Dosage: 25 MILLIGRAM/SQ. METER
     Route: 041
     Dates: start: 20110825, end: 20110829
  8. FIRSTCIN [Concomitant]
     Route: 065
     Dates: start: 20110729, end: 20110816
  9. SEROTONE [Concomitant]
     Route: 065
     Dates: start: 20110705, end: 20110709
  10. CALBLOCK [Concomitant]
     Route: 065
     Dates: end: 20111130
  11. FAMOTIDINE [Concomitant]
     Route: 065
     Dates: end: 20111130
  12. FOSMICIN-S [Concomitant]
     Route: 065
     Dates: start: 20110830, end: 20110912
  13. FUNGUARD [Concomitant]
     Route: 065
     Dates: start: 20110926, end: 20111003
  14. CYTARABINE [Concomitant]
     Route: 065
     Dates: start: 20110101
  15. SEROTONE [Concomitant]
     Route: 065
     Dates: start: 20110516, end: 20110522
  16. SEROTONE [Concomitant]
     Route: 065
     Dates: start: 20110825, end: 20110829
  17. ACRASIN [Concomitant]
     Route: 065
     Dates: start: 20110101
  18. VIDAZA [Suspect]
     Dosage: 25 MILLIGRAM/SQ. METER
     Route: 058
     Dates: start: 20110705, end: 20110709
  19. URINORM [Concomitant]
     Route: 065
     Dates: end: 20111130
  20. OMEGACIN [Concomitant]
     Route: 065
     Dates: start: 20110817, end: 20110829

REACTIONS (5)
  - BLAST CELL COUNT INCREASED [None]
  - NEUTROPHIL COUNT DECREASED [None]
  - ANAEMIA [None]
  - PLATELET COUNT DECREASED [None]
  - SEPSIS [None]
